FAERS Safety Report 9912261 (Version 2)
Quarter: 2014Q1

REPORT INFORMATION
  Report Type: Report from Study
  Country: CA (occurrence: CA)
  Receive Date: 20140220
  Receipt Date: 20140220
  Transmission Date: 20141002
  Serious: Yes (Other)
  Sender: FDA-Public Use
  Company Number: CA-ROCHE-1344514

PATIENT
  Age: 73 Year
  Sex: Female

DRUGS (8)
  1. RITUXAN [Suspect]
     Indication: LYMPHOMA
     Route: 042
     Dates: start: 20140120
  2. RITUXAN [Suspect]
     Indication: SJOGREN^S SYNDROME
  3. RITUXAN [Suspect]
     Indication: VASCULITIS
  4. CELLCEPT [Suspect]
     Indication: PRODUCT USED FOR UNKNOWN INDICATION
     Route: 065
  5. ACETAMINOPHEN [Concomitant]
     Indication: PREMEDICATION
     Route: 048
     Dates: start: 20140120
  6. METHYLPREDNISOLONE [Concomitant]
     Indication: PREMEDICATION
     Route: 042
     Dates: start: 20140120
  7. LIPITOR [Concomitant]
  8. ASA [Concomitant]

REACTIONS (9)
  - Chromaturia [Unknown]
  - Off label use [Unknown]
  - Petechiae [Not Recovered/Not Resolved]
  - Local swelling [Not Recovered/Not Resolved]
  - Pyrexia [Unknown]
  - Urine output decreased [Not Recovered/Not Resolved]
  - Sjogren^s syndrome [Not Recovered/Not Resolved]
  - Infusion related reaction [Recovering/Resolving]
  - Erythema [Not Recovered/Not Resolved]
